FAERS Safety Report 5751257-6 (Version None)
Quarter: 2008Q2

REPORT INFORMATION
  Report Type: 
  Country: None (occurrence: None)
  Receive Date: 20080528
  Receipt Date: 20080516
  Transmission Date: 20081010
  Serious: Yes (Hospitalization)
  Sender: FDA-Public Use
  Company Number: FR-PFIZER INC-2006052897

PATIENT
  Sex: Male
  Weight: 57 kg

DRUGS (4)
  1. SU-011,248 [Suspect]
     Indication: HEPATIC NEOPLASM MALIGNANT
     Route: 048
     Dates: start: 20060320, end: 20060413
  2. SU-011,248 [Suspect]
     Route: 048
     Dates: start: 20060524, end: 20060602
  3. EFFEXOR [Concomitant]
     Route: 048
  4. SKENAN [Concomitant]
     Route: 048

REACTIONS (4)
  - ASTHENIA [None]
  - HEPATIC FUNCTION ABNORMAL [None]
  - SOMNOLENCE [None]
  - THROMBOCYTOPENIA [None]
